FAERS Safety Report 5574998-2 (Version None)
Quarter: 2007Q4

REPORT INFORMATION
  Report Type: 
  Country: None (occurrence: None)
  Receive Date: 20071227
  Receipt Date: 20071220
  Transmission Date: 20080405
  Serious: Yes (Life-Threatening, Hospitalization)
  Sender: FDA-Public Use
  Company Number: B0500979A

PATIENT
  Age: 69 Year
  Sex: Female

DRUGS (8)
  1. AVANDAMET [Suspect]
     Indication: DIABETES MELLITUS
     Route: 048
     Dates: start: 20070401
  2. TRITACE [Concomitant]
  3. UNKNOWN DRUG [Concomitant]
     Dosage: 40MG PER DAY
  4. DIAPREL [Concomitant]
  5. UNKNOWN DRUG [Concomitant]
     Route: 048
  6. GLIMEPIRIDE [Concomitant]
     Route: 048
  7. GLUCOBENE [Concomitant]
     Route: 048
  8. GLUCOBENE [Concomitant]
     Route: 048

REACTIONS (4)
  - CEREBROVASCULAR ACCIDENT [None]
  - DYSPNOEA [None]
  - MUSCULAR WEAKNESS [None]
  - WEIGHT INCREASED [None]
